FAERS Safety Report 7738925-1 (Version None)
Quarter: 2011Q3

REPORT INFORMATION
  Report Type: 
  Country: None (occurrence: None)
  Receive Date: 20110909
  Receipt Date: 20110831
  Transmission Date: 20111222
  Serious: No
  Sender: FDA-Public Use
  Company Number: US-BIOGENIDEC-2010BI043132

PATIENT
  Sex: Female

DRUGS (1)
  1. TYSABRI [Suspect]
     Indication: MULTIPLE SCLEROSIS
     Route: 042
     Dates: start: 20070426

REACTIONS (8)
  - BLOOD PRESSURE DECREASED [None]
  - MULTIPLE SCLEROSIS [None]
  - VEIN DISORDER [None]
  - FATIGUE [None]
  - URINARY TRACT INFECTION [None]
  - DISTURBANCE IN ATTENTION [None]
  - POOR VENOUS ACCESS [None]
  - NAUSEA [None]
